FAERS Safety Report 23487012 (Version 1)
Quarter: 2024Q1

REPORT INFORMATION
  Report Type: Spontaneous
  Country: US (occurrence: None)
  Receive Date: 20240205
  Receipt Date: 20240205
  Transmission Date: 20240410
  Serious: No
  Sender: FDA-Public Use
  Company Number: None

PATIENT
  Sex: Male

DRUGS (2)
  1. STELARA [Suspect]
     Active Substance: USTEKINUMAB
     Indication: Colitis
     Dosage: OTHER FREQUENCY : EVERY 6 WEEKS;?
     Route: 058
     Dates: start: 20201106
  2. STELARA [Suspect]
     Active Substance: USTEKINUMAB
     Indication: Crohn^s disease

REACTIONS (3)
  - Drug ineffective [None]
  - Rectal haemorrhage [None]
  - Diarrhoea [None]
